FAERS Safety Report 13243922 (Version 5)
Quarter: 2017Q3

REPORT INFORMATION
  Report Type: Report from Study
  Country: US (occurrence: US)
  Receive Date: 20170217
  Receipt Date: 20170914
  Transmission Date: 20171127
  Serious: Yes (Hospitalization, Other)
  Sender: FDA-Public Use
  Company Number: US-GILEAD-2017-0258622

PATIENT
  Age: 80 Year
  Sex: Female

DRUGS (16)
  1. WARFARIN [Concomitant]
     Active Substance: WARFARIN
  2. METOPROLOL SUCCINATE. [Concomitant]
     Active Substance: METOPROLOL SUCCINATE
  3. SPIRONOLACTONE. [Concomitant]
     Active Substance: SPIRONOLACTONE
  4. SYMBICORT [Concomitant]
     Active Substance: BUDESONIDE\FORMOTEROL FUMARATE DIHYDRATE
  5. VITAMIN D                          /00107901/ [Concomitant]
     Active Substance: ERGOCALCIFEROL
  6. LEVOTHYROXINE. [Concomitant]
     Active Substance: LEVOTHYROXINE
  7. XANAX [Concomitant]
     Active Substance: ALPRAZOLAM
  8. ADEMPAS [Concomitant]
     Active Substance: RIOCIGUAT
  9. ALBUTEROL                          /00139501/ [Concomitant]
     Active Substance: ALBUTEROL
  10. AMBRISENTAN [Suspect]
     Active Substance: AMBRISENTAN
     Indication: PULMONARY HYPERTENSION
     Dosage: 5 MG, QD
     Route: 065
  11. ADCIRCA [Concomitant]
     Active Substance: TADALAFIL
  12. DRONEDARONE [Concomitant]
     Active Substance: DRONEDARONE
  13. MULTAQ [Concomitant]
     Active Substance: DRONEDARONE
  14. TORSEMIDE. [Concomitant]
     Active Substance: TORSEMIDE
  15. LEVOXYL [Concomitant]
     Active Substance: LEVOTHYROXINE SODIUM
  16. GUAIFENESIN. [Concomitant]
     Active Substance: GUAIFENESIN

REACTIONS (10)
  - Pulmonary arterial hypertension [Unknown]
  - Pneumonia [Not Recovered/Not Resolved]
  - Fatigue [Unknown]
  - Depressed mood [Unknown]
  - Hypotension [Unknown]
  - Pyrexia [Unknown]
  - Headache [Recovered/Resolved]
  - Herpes zoster [Unknown]
  - Pain [Unknown]
  - Peripheral swelling [Unknown]
